FAERS Safety Report 18548726 (Version 1)
Quarter: 2020Q4

REPORT INFORMATION
  Report Type: Spontaneous
  Country: US (occurrence: US)
  Receive Date: 20201125
  Receipt Date: 20201125
  Transmission Date: 20210114
  Serious: Yes (Hospitalization, Other)
  Sender: FDA-Public Use
  Company Number: US-ABBVIE-20K-163-3564015-00

PATIENT
  Sex: Female
  Weight: 61.29 kg

DRUGS (4)
  1. LOSARTAN. [Concomitant]
     Active Substance: LOSARTAN
     Indication: BLOOD PRESSURE MEASUREMENT
  2. HUMIRA [Suspect]
     Active Substance: ADALIMUMAB
     Route: 058
     Dates: start: 20200625
  3. HUMIRA [Suspect]
     Active Substance: ADALIMUMAB
     Indication: RHEUMATOID ARTHRITIS
     Route: 058
  4. ACETYLSALICYLIC ACID [Concomitant]
     Active Substance: ASPIRIN
     Indication: PAIN

REACTIONS (8)
  - Leg amputation [Unknown]
  - Needle issue [Unknown]
  - Crying [Unknown]
  - Poor peripheral circulation [Unknown]
  - Depressed mood [Unknown]
  - Wound infection [Unknown]
  - Impaired healing [Unknown]
  - Product packaging issue [Unknown]

NARRATIVE: CASE EVENT DATE: 2020
